FAERS Safety Report 20727860 (Version 1)
Quarter: 2022Q2

REPORT INFORMATION
  Report Type: Spontaneous
  Country: US (occurrence: US)
  Receive Date: 20220419
  Receipt Date: 20220419
  Transmission Date: 20220721
  Serious: Yes (Life-Threatening, Hospitalization)
  Sender: FDA-Public Use
  Company Number: US-STRIDES ARCOLAB LIMITED-2022SP004220

PATIENT
  Age: 57 Year
  Sex: Female

DRUGS (1)
  1. PREDNISOLONE [Suspect]
     Active Substance: PREDNISOLONE
     Indication: Product used for unknown indication
     Dosage: 40 MILLIGRAM WITH PLAN TO TAPER GRADUALLY
     Route: 065

REACTIONS (6)
  - Duodenitis [Unknown]
  - Duodenal ulcer [Unknown]
  - Gastric haemorrhage [Unknown]
  - Obstruction gastric [Unknown]
  - Anaemia [Unknown]
  - Strongyloidiasis [Unknown]
